FAERS Safety Report 7449555-3 (Version None)
Quarter: 2011Q2

REPORT INFORMATION
  Report Type: 
  Country: None (occurrence: None)
  Receive Date: 20110502
  Receipt Date: 20110426
  Transmission Date: 20111010
  Serious: Yes (Death, Hospitalization)
  Sender: FDA-Public Use
  Company Number: SG-BAYER-2011-035754

PATIENT
  Age: 75 Year
  Sex: Female

DRUGS (13)
  1. FERROUS FUMARATE [Concomitant]
  2. HYDRALAZINE HCL [Concomitant]
  3. VANCOMYCIN [Suspect]
     Dosage: UNK
     Dates: start: 20101118, end: 20101120
  4. BROMHEXINE [Concomitant]
  5. CALCIUM ACETATE [Concomitant]
  6. DICLOFENAC [DICLOFENAC] [Concomitant]
     Route: 061
  7. ENALAPRIL MALEATE [Concomitant]
  8. NIFEDIPINE [Concomitant]
  9. ACETAMINOPHEN [Concomitant]
  10. ACETYLSALICYLIC ACID SRT [Suspect]
     Dosage: UNK
     Dates: start: 20101103, end: 20101117
  11. OMEPRAZOLE [Suspect]
     Dosage: UNK
     Dates: start: 20101103, end: 20101124
  12. PIPERACILLIN AND TAZOBACTAM [Suspect]
     Dosage: UNK
     Dates: start: 20101118, end: 20101123
  13. EPOETIN BETA [Concomitant]

REACTIONS (2)
  - TOXIC EPIDERMAL NECROLYSIS [None]
  - STEVENS-JOHNSON SYNDROME [None]
